FAERS Safety Report 8732012 (Version 2)
Quarter: 2012Q4

REPORT INFORMATION
  Report Type: 
  Country: DE (occurrence: DE)
  Receive Date: 20120820
  Receipt Date: 20121106
  Transmission Date: 20130627
  Serious: Yes (Hospitalization, Disabling)
  Sender: FDA-Public Use
  Company Number: DE-JNJFOC-20120809237

PATIENT
  Age: 63 Year
  Sex: Female
  Weight: 52 kg

DRUGS (11)
  1. XARELTO [Suspect]
     Indication: JOINT PROSTHESIS USER
     Route: 048
     Dates: start: 20120202, end: 20120310
  2. XARELTO [Suspect]
     Indication: THROMBOSIS PROPHYLAXIS
     Route: 048
     Dates: start: 20120202, end: 20120310
  3. XARELTO [Suspect]
     Indication: HIP ARTHROPLASTY
     Route: 048
     Dates: start: 20120202, end: 20120310
  4. ACETYLSALICYLIC ACID [Concomitant]
     Route: 048
  5. NOVAMINSULFON [Concomitant]
     Indication: JOINT PROSTHESIS USER
     Dosage: 1-1-1-1
     Route: 065
     Dates: start: 20120203, end: 20120301
  6. FLUOXETIN [Concomitant]
     Indication: ANXIETY DISORDER
     Route: 048
  7. FLUOXETIN [Concomitant]
     Indication: ANXIETY DISORDER
     Dosage: 1.5-0-0
     Route: 048
  8. VOLTAREN [Concomitant]
     Indication: JOINT PROSTHESIS USER
     Dosage: PRN
     Route: 048
  9. VOLTAREN [Concomitant]
     Indication: JOINT PROSTHESIS USER
     Route: 048
     Dates: start: 20120203, end: 20120310
  10. PANTAZOL [Concomitant]
     Dosage: 40mg PRN
     Route: 065
  11. PANTAZOL [Concomitant]
     Route: 065

REACTIONS (2)
  - Optic ischaemic neuropathy [Not Recovered/Not Resolved]
  - Optic atrophy [Not Recovered/Not Resolved]
